FAERS Safety Report 5890048-2 (Version None)
Quarter: 2008Q3

REPORT INFORMATION
  Report Type: 
  Country: None (occurrence: None)
  Receive Date: 20080919
  Receipt Date: 20080908
  Transmission Date: 20090109
  Serious: Yes (Other)
  Sender: FDA-Public Use
  Company Number: US-PFIZER INC-2008058647

PATIENT
  Sex: Male
  Weight: 96.2 kg

DRUGS (8)
  1. CHANTIX [Suspect]
     Indication: SMOKING CESSATION THERAPY
     Route: 048
     Dates: start: 20080703
  2. PAXIL [Concomitant]
  3. XANAX [Concomitant]
  4. TENORMIN [Concomitant]
  5. ALL OTHER THERAPEUTIC PRODUCTS [Concomitant]
  6. ZOCOR [Concomitant]
  7. ANTITHROMBOTIC AGENTS [Concomitant]
     Dates: end: 20080501
  8. ACETYL SALICYLIC ACID COMPOUND TAB [Concomitant]
     Dates: start: 20080501

REACTIONS (1)
  - DEPRESSION [None]
